FAERS Safety Report 7482928-1 (Version None)
Quarter: 2011Q2

REPORT INFORMATION
  Report Type: 
  Country: None (occurrence: None)
  Receive Date: 20110516
  Receipt Date: 20110214
  Transmission Date: 20111010
  Serious: No
  Sender: FDA-Public Use
  Company Number: US-BAYER-2011-037689

PATIENT
  Age: 79 Year
  Sex: Male

DRUGS (13)
  1. GALANTAMINE HYDROBROMIDE [Concomitant]
     Dosage: 16 MG, QD
     Route: 048
  2. FUROSEMIDE [Concomitant]
     Dosage: 40 MG, QD
     Route: 048
  3. AVODART [Concomitant]
     Dosage: 1 DF, QD
     Route: 048
  4. ASACOL [Concomitant]
     Dosage: 800 MG, TID
     Route: 048
  5. SYNTHROID [Concomitant]
     Dosage: 150 MG, QD
     Route: 048
  6. ALEVE (CAPLET) [Suspect]
     Indication: BACK PAIN
     Dosage: 2 DF, QD
     Route: 048
     Dates: start: 20100101, end: 20100101
  7. ALEVE (CAPLET) [Suspect]
     Indication: ANALGESIC THERAPY
     Dosage: 1 DF, QD
     Route: 048
     Dates: start: 20100820, end: 20100820
  8. AGGRENOX [Concomitant]
     Dosage: 1 DF, BID
     Route: 048
  9. DIOVAN [Concomitant]
     Dosage: 160 MG, QD
  10. JANUVIA [Concomitant]
     Dosage: 50 MG, QD
  11. CRESTOR [Concomitant]
     Dosage: 10 MG, MON, WED, FRI
     Route: 048
  12. NEXIUM [Concomitant]
     Dosage: 40 MG, BID
     Route: 048
  13. KEPPRA [Concomitant]
     Dosage: 250 MG, QD

REACTIONS (7)
  - PRURITUS [None]
  - HYPERSENSITIVITY [None]
  - DYSPHAGIA [None]
  - DYSPNOEA [None]
  - DISORIENTATION [None]
  - PALMAR ERYTHEMA [None]
  - BLOOD PRESSURE DECREASED [None]
